FAERS Safety Report 6876392-0 (Version None)
Quarter: 2010Q3

REPORT INFORMATION
  Report Type: 
  Country: None (occurrence: None)
  Receive Date: 20100727
  Receipt Date: 20070702
  Transmission Date: 20110219
  Serious: Yes (Hospitalization)
  Sender: FDA-Public Use
  Company Number: US-PFIZER INC-2006117760

PATIENT
  Sex: Male
  Weight: 88.5 kg

DRUGS (9)
  1. CELEBREX [Suspect]
     Indication: PAIN
     Route: 048
     Dates: start: 19990426, end: 20020130
  2. VIOXX [Suspect]
     Indication: PAIN
     Route: 048
     Dates: start: 19990726, end: 20020501
  3. ASPIRIN [Concomitant]
  4. DIAZEPAM [Concomitant]
  5. DOXAZOSIN [Concomitant]
  6. GLUCOTROL [Concomitant]
  7. HYDROCODONE BITARTRATE [Concomitant]
  8. LOTREL [Concomitant]
  9. NORVASC [Concomitant]

REACTIONS (2)
  - CARDIAC FAILURE CONGESTIVE [None]
  - MYOCARDIAL INFARCTION [None]
